FAERS Safety Report 7231323-9 (Version None)
Quarter: 2011Q1

REPORT INFORMATION
  Report Type: 
  Country: None (occurrence: None)
  Receive Date: 20110107
  Receipt Date: 20101223
  Transmission Date: 20110831
  Serious: Yes (Other)
  Sender: FDA-Public Use
  Company Number: DE_2010_2988

PATIENT
  Sex: Female

DRUGS (1)
  1. NAVELBINE [Suspect]
     Dosage: 53.7 MG/M2 ONCE IV
     Route: 042

REACTIONS (1)
  - ACCIDENTAL OVERDOSE [None]
